FAERS Safety Report 11212139 (Version 1)
Quarter: 2015Q2

REPORT INFORMATION
  Report Type: Spontaneous
  Country: US (occurrence: US)
  Receive Date: 20150623
  Receipt Date: 20150623
  Transmission Date: 20150821
  Serious: Yes (Other)
  Sender: FDA-Public Use
  Company Number: PHHY2015US072910

PATIENT
  Age: 38 Year
  Sex: Female

DRUGS (4)
  1. METHYLDOPA. [Suspect]
     Active Substance: METHYLDOPA
     Indication: PRODUCT USED FOR UNKNOWN INDICATION
     Route: 065
  2. TRIAMCINOLONE [Suspect]
     Active Substance: TRIAMCINOLONE
     Indication: CUTANEOUS LUPUS ERYTHEMATOSUS
     Route: 065
  3. HYDROCORTISONE. [Suspect]
     Active Substance: HYDROCORTISONE
     Indication: PRODUCT USED FOR UNKNOWN INDICATION
     Route: 062
  4. CIPROFLOXACIN. [Suspect]
     Active Substance: CIPROFLOXACIN
     Indication: RASH
     Route: 065

REACTIONS (10)
  - Lymphadenopathy [Recovered/Resolved]
  - Hyperplasia [Recovered/Resolved]
  - Pruritus [Recovered/Resolved]
  - Lichenification [Recovered/Resolved]
  - Rash [Recovered/Resolved]
  - Skin exfoliation [Recovered/Resolved]
  - Drug ineffective [Recovered/Resolved]
  - Cutaneous lupus erythematosus [Recovered/Resolved]
  - Skin hyperpigmentation [Recovered/Resolved]
  - Maternal exposure during pregnancy [Recovered/Resolved]
